FAERS Safety Report 17726599 (Version 3)
Quarter: 2020Q2

REPORT INFORMATION
  Report Type: Report from Study
  Country: US (occurrence: US)
  Receive Date: 20200430
  Receipt Date: 20200515
  Transmission Date: 20200714
  Serious: Yes (Hospitalization, Other)
  Sender: FDA-Public Use
  Company Number: US-ROCHE-2586041

PATIENT
  Age: 56 Year
  Sex: Female

DRUGS (3)
  1. OCREVUS [Suspect]
     Active Substance: OCRELIZUMAB
     Dosage: SECOND HALF DOSE
     Route: 065
     Dates: start: 20190815
  2. OCREVUS [Suspect]
     Active Substance: OCRELIZUMAB
     Indication: SECONDARY PROGRESSIVE MULTIPLE SCLEROSIS
     Dosage: SUBSEQUENT INFUSIONS WERE RECEIVED ON 15/AUG/2019 AND 600 MG ON 26/FEB/2020.
     Route: 065
     Dates: start: 20190731
  3. OCREVUS [Suspect]
     Active Substance: OCRELIZUMAB
     Route: 065
     Dates: start: 20190226

REACTIONS (5)
  - Syncope [Unknown]
  - Ageusia [Unknown]
  - Cardiomegaly [Unknown]
  - Pneumonia [Not Recovered/Not Resolved]
  - Cardiac failure congestive [Unknown]

NARRATIVE: CASE EVENT DATE: 20200407
